FAERS Safety Report 17808473 (Version 2)
Quarter: 2020Q2

REPORT INFORMATION
  Report Type: Spontaneous
  Country: IT (occurrence: IT)
  Receive Date: 20200520
  Receipt Date: 20200618
  Transmission Date: 20200714
  Serious: Yes (Hospitalization)
  Sender: FDA-Public Use
  Company Number: NVSC2020IT136826

PATIENT
  Age: 17 Day
  Sex: Male
  Weight: 3 kg

DRUGS (1)
  1. AMPICILLIN [Suspect]
     Active Substance: AMPICILLIN
     Indication: INFECTION
     Dosage: 1 DF, CYCLIC
     Route: 065
     Dates: start: 20200121, end: 20200124

REACTIONS (6)
  - Oedema [Recovering/Resolving]
  - Drug hypersensitivity [Recovering/Resolving]
  - Oedema peripheral [Recovering/Resolving]
  - Urticaria [Recovering/Resolving]
  - Periorbital oedema [Recovering/Resolving]
  - Face oedema [Recovering/Resolving]

NARRATIVE: CASE EVENT DATE: 20200207
